FAERS Safety Report 4822770-0 (Version None)
Quarter: 2005Q4

REPORT INFORMATION
  Report Type: 
  Country: None (occurrence: None)
  Receive Date: 20051108
  Receipt Date: 20050916
  Transmission Date: 20060501
  Serious: Yes (Hospitalization)
  Sender: FDA-Public Use
  Company Number: 2005AP04927

PATIENT
  Age: 25406 Day
  Sex: Male

DRUGS (12)
  1. IRESSA [Suspect]
     Indication: OROPHARYNGEAL CANCER RECURRENT
     Route: 048
     Dates: start: 20050810
  2. PLAVIX [Concomitant]
     Indication: THROMBOSIS PROPHYLAXIS
     Route: 048
     Dates: start: 20020101, end: 20050915
  3. FUROSEMIDE [Concomitant]
     Indication: MYOCARDIAL INFARCTION
     Route: 048
     Dates: start: 20020101
  4. FUROSEMIDE [Concomitant]
     Indication: OEDEMA
     Route: 048
     Dates: start: 20020101
  5. FUROSEMIDE [Concomitant]
     Indication: HYPERTENSION
     Route: 048
     Dates: start: 20020101
  6. SELOKEN [Concomitant]
     Indication: ATRIAL FIBRILLATION
     Route: 048
     Dates: start: 20020101
  7. SELOKEN [Concomitant]
     Indication: HYPERTENSION
     Route: 048
     Dates: start: 20020101
  8. SELOKEN [Concomitant]
     Indication: CARDIAC FAILURE
     Route: 048
     Dates: start: 20020101
  9. SPIRONOLAKTIM [Concomitant]
     Indication: MYOCARDIAL INFARCTION
     Route: 048
     Dates: start: 20020101
  10. SPIRONOLAKTIM [Concomitant]
     Indication: OEDEMA
     Route: 048
     Dates: start: 20020101
  11. ACETAMINOPHEN [Concomitant]
     Indication: CANCER PAIN
     Dosage: 500-1000 MG
     Route: 048
     Dates: start: 20050201
  12. TRAMADOL [Concomitant]
     Indication: CANCER PAIN
     Route: 048
     Dates: start: 20050803

REACTIONS (4)
  - INFECTION PROPHYLAXIS [None]
  - MOUTH HAEMORRHAGE [None]
  - TUMOUR HAEMORRHAGE [None]
  - TUMOUR NECROSIS [None]
